FAERS Safety Report 4632184-4 (Version None)
Quarter: 2005Q2

REPORT INFORMATION
  Report Type: 
  Country: None (occurrence: None)
  Receive Date: 20050401
  Receipt Date: 20041208
  Transmission Date: 20051028
  Serious: Yes (Hospitalization)
  Sender: FDA-Public Use
  Company Number: 04P-163-0283136-00

PATIENT
  Age: 78 Year
  Sex: Female
  Weight: 79.3795 kg

DRUGS (3)
  1. DEPAKOTE [Suspect]
     Indication: AGGRESSION
     Dosage: 5000 MG, 1 IN 1 D, PER ORAL
     Route: 048
     Dates: start: 20040901, end: 20041101
  2. DEPAKOTE [Suspect]
     Indication: AGGRESSION
     Dosage: 5000 MG, 1 IN 1 D, PER ORAL
     Route: 048
     Dates: start: 20041101, end: 20041203
  3. DEPAKOTE [Suspect]
     Indication: AGGRESSION
     Dosage: 5000 MG, 1 IN 1 D, PER ORAL
     Route: 048
     Dates: start: 20041201

REACTIONS (5)
  - CONFUSIONAL STATE [None]
  - DYSARTHRIA [None]
  - FATIGUE [None]
  - HYPOTENSION [None]
  - TREMOR [None]
